FAERS Safety Report 6585656-X (Version None)
Quarter: 2010Q1

REPORT INFORMATION
  Report Type: 
  Country: None (occurrence: None)
  Receive Date: 20100217
  Receipt Date: 20100205
  Transmission Date: 20100710
  Serious: Yes (Death, Life-Threatening, Other)
  Sender: FDA-Public Use
  Company Number: JP-PFIZER INC-2010016261

PATIENT
  Age: 67 Year
  Sex: Female
  Weight: 44 kg

DRUGS (8)
  1. SILDENAFIL CITRATE [Suspect]
     Indication: PULMONARY ARTERIAL HYPERTENSION
     Dosage: 20 MG, 3X/DAY
     Route: 048
     Dates: start: 20090628
  2. BERAPROST SODIUM [Concomitant]
     Indication: PULMONARY ARTERIAL HYPERTENSION
     Dosage: UNK
     Route: 048
     Dates: start: 20090627
  3. CEVIMELINE HYDROCHLORIDE [Concomitant]
     Dosage: UNK
     Route: 048
  4. BACLOFEN [Concomitant]
     Dosage: UNK
     Route: 048
  5. LANDSEN [Concomitant]
     Dosage: UNK
     Route: 048
  6. VOLTAREN [Concomitant]
     Dosage: UNK
     Route: 048
  7. PARIET [Concomitant]
     Dosage: UNK
     Route: 048
  8. DOBUTAMINE HYDROCHLORIDE [Concomitant]
     Dosage: UNK
     Route: 042
     Dates: start: 20090728

REACTIONS (2)
  - ATRIAL FLUTTER [None]
  - DEATH [None]
